FAERS Safety Report 16367773 (Version 2)
Quarter: 2019Q2

REPORT INFORMATION
  Report Type: Spontaneous
  Country: TR (occurrence: TR)
  Receive Date: 20190529
  Receipt Date: 20190620
  Transmission Date: 20190711
  Serious: Yes (Other)
  Sender: FDA-Public Use
  Company Number: PHHY2019TR121566

PATIENT
  Age: 2 Year
  Sex: Male

DRUGS (1)
  1. PEDITUS SANDOZ [Suspect]
     Active Substance: ACETAMINOPHEN\GUAIFENESIN\PHENYLEPHRINE HYDROCHLORIDE\PYRILAMINE MALEATE
     Indication: PHARYNGITIS
     Dosage: UNK, BID (TOTALY 3 DAYS USAGE)
     Route: 065

REACTIONS (10)
  - Swelling face [Unknown]
  - Peripheral swelling [Unknown]
  - Contusion [Unknown]
  - Balance disorder [Unknown]
  - Pyrexia [Recovering/Resolving]
  - Loss of consciousness [Unknown]
  - Splenomegaly [Unknown]
  - Diarrhoea haemorrhagic [Unknown]
  - Product use issue [Unknown]
  - Arrhythmia [Unknown]
